FAERS Safety Report 10877478 (Version 1)
Quarter: 2015Q1

REPORT INFORMATION
  Report Type: Spontaneous
  Country: US (occurrence: None)
  Receive Date: 20150224
  Receipt Date: 20150224
  Transmission Date: 20150721
  Serious: Yes (Other)
  Sender: FDA-Public Use
  Company Number: None

PATIENT
  Age: 33 Year
  Sex: Female
  Weight: 79.83 kg

DRUGS (6)
  1. PROCARDIA XL [Concomitant]
     Active Substance: NIFEDIPINE
  2. XANAX [Concomitant]
     Active Substance: ALPRAZOLAM
  3. CLONIDINE. [Concomitant]
     Active Substance: CLONIDINE
  4. GENTAMICIN. [Suspect]
     Active Substance: GENTAMICIN
     Indication: URINARY TRACT INFECTION
     Dosage: EVERY 12 HOURS 2X DAILY BY INJECTION
     Dates: start: 201111, end: 20150105
  5. NORCO [Concomitant]
     Active Substance: ACETAMINOPHEN\HYDROCODONE BITARTRATE
  6. HYDROCODONE COMPOUND [Concomitant]
     Active Substance: HOMATROPINE METHYLBROMIDE\HYDROCODONE BITARTRATE

REACTIONS (4)
  - Fall [None]
  - Tinnitus [None]
  - Deafness [None]
  - Balance disorder [None]

NARRATIVE: CASE EVENT DATE: 2011
